FAERS Safety Report 4647129-0 (Version None)
Quarter: 2005Q2

REPORT INFORMATION
  Report Type: 
  Country: None (occurrence: None)
  Receive Date: 20050428
  Receipt Date: 20050418
  Transmission Date: 20051028
  Serious: Yes (Hospitalization)
  Sender: FDA-Public Use
  Company Number: DE-JNJFOC-20050404392

PATIENT
  Age: 64 Year
  Sex: Female

DRUGS (10)
  1. REMICADE [Suspect]
     Indication: RHEUMATOID ARTHRITIS
     Route: 042
  2. ACTONEL [Concomitant]
  3. SURGAM [Concomitant]
  4. STERIOD [Concomitant]
  5. PANTOPRAZOLE SODIUM [Concomitant]
  6. EUTHYROX [Concomitant]
  7. CODIOVAN [Concomitant]
  8. CODIOVAN [Concomitant]
  9. CONCOR [Concomitant]
  10. CALCILAC [Concomitant]

REACTIONS (2)
  - ABSCESS [None]
  - DIVERTICULITIS [None]
